FAERS Safety Report 9107142 (Version 1)
Quarter: 2013Q1

REPORT INFORMATION
  Report Type: Report from Study
  Country: US (occurrence: US)
  Receive Date: 20130221
  Receipt Date: 20130221
  Transmission Date: 20140127
  Serious: Yes (Hospitalization, Disabling)
  Sender: FDA-Public Use
  Company Number: US-CELGENEUS-163-AB007-13020043

PATIENT
  Age: 63 Year
  Sex: Female
  Weight: 83.1 kg

DRUGS (17)
  1. ABI-007 [Suspect]
     Indication: PANCREATIC CARCINOMA METASTATIC
     Dosage: 125 MILLIGRAM/SQ. METER
     Route: 041
     Dates: start: 20110721
  2. ABI-007 [Suspect]
     Dosage: 75 MILLIGRAM/SQ. METER
     Route: 041
     Dates: start: 20130124
  3. GEMCITABINE [Suspect]
     Indication: PANCREATIC CARCINOMA METASTATIC
     Dosage: 1000 MILLIGRAM/SQ. METER
     Route: 041
     Dates: start: 20110721
  4. GEMCITABINE [Suspect]
     Dosage: 600 MILLIGRAM/SQ. METER
     Route: 041
     Dates: start: 20130124
  5. LEVOTHYROXIN [Concomitant]
     Indication: HYPOTHYROIDISM
     Route: 048
     Dates: start: 1991
  6. TUMS [Concomitant]
     Indication: ERUCTATION
     Route: 048
     Dates: start: 2011
  7. NAPROSYN [Concomitant]
     Indication: OSTEOARTHRITIS
     Route: 048
     Dates: start: 2011
  8. COMPAZINE [Concomitant]
     Indication: PROPHYLAXIS OF NAUSEA AND VOMITING
     Route: 048
     Dates: start: 20110721
  9. ADVIL [Concomitant]
     Indication: PELVIC PAIN
     Route: 048
     Dates: start: 20111123
  10. AMBIEN [Concomitant]
     Indication: INSOMNIA
     Route: 048
     Dates: start: 20120105
  11. FRAGMIN [Concomitant]
     Indication: DEEP VEIN THROMBOSIS
     Route: 058
     Dates: start: 20120315
  12. DEXAMETHASONE [Concomitant]
     Indication: PREMEDICATION
     Route: 041
     Dates: start: 20120721
  13. KYTRIL [Concomitant]
     Indication: PREMEDICATION
     Route: 041
     Dates: start: 20120721
  14. OMEPRAZOLE [Concomitant]
     Indication: ERUCTATION
     Route: 048
     Dates: start: 201105
  15. AUGMENTIN [Concomitant]
     Indication: COLITIS
     Route: 048
     Dates: start: 20130103, end: 20130117
  16. FLAGYL [Concomitant]
     Indication: COLITIS
     Route: 048
     Dates: start: 20121228, end: 20121231
  17. CIPROFLOXACIN [Concomitant]
     Indication: COLITIS
     Route: 048
     Dates: start: 20121228, end: 20121231

REACTIONS (1)
  - Diverticulitis [Not Recovered/Not Resolved]
